FAERS Safety Report 16037751 (Version 2)
Quarter: 2019Q2

REPORT INFORMATION
  Report Type: Spontaneous
  Country: IT (occurrence: IT)
  Receive Date: 20190305
  Receipt Date: 20190405
  Transmission Date: 20190711
  Serious: Yes (Disabling)
  Sender: FDA-Public Use
  Company Number: IT-MYLANLABS-2019M1019476

PATIENT
  Age: 36 Year
  Sex: Male
  Weight: 63 kg

DRUGS (4)
  1. PREDNISONE EG [Concomitant]
     Indication: RENAL COLIC
     Dosage: 25 MILLIGRAM, QD
     Route: 048
     Dates: start: 20180728, end: 20180801
  2. TAMSULOSINA                        /01280301/ [Concomitant]
     Indication: RENAL COLIC
     Dosage: 0.4 MILLIGRAM, QD
     Route: 048
     Dates: start: 20180728, end: 20180811
  3. LENIZAK [Concomitant]
     Active Substance: DEXKETOPROFEN\TRAMADOL
     Indication: RENAL COLIC
     Dosage: 75 MILLIGRAM, AS NECCESSARY
     Route: 048
     Dates: start: 20180728, end: 20180730
  4. LEVOFLOXACINA MYLAN GENERICS ITALIA [Suspect]
     Active Substance: LEVOFLOXACIN
     Indication: RENAL COLIC
     Dosage: 500 MILLIGRAM, QD
     Route: 048
     Dates: start: 20180728, end: 20180731

REACTIONS (5)
  - Tendon pain [Recovering/Resolving]
  - Impaired driving ability [Recovering/Resolving]
  - Gait disturbance [Recovering/Resolving]
  - Dysstasia [Recovering/Resolving]
  - Pain in extremity [Recovering/Resolving]

NARRATIVE: CASE EVENT DATE: 20180731
